FAERS Safety Report 16357256 (Version 1)
Quarter: 2019Q2

REPORT INFORMATION
  Report Type: Spontaneous
  Country: US (occurrence: US)
  Receive Date: 20190527
  Receipt Date: 20190527
  Transmission Date: 20190711
  Serious: No
  Sender: FDA-Public Use
  Company Number: US-TORRENT-00007816

PATIENT
  Sex: Female

DRUGS (1)
  1. LOSARTAN AND HYDROCHLOROTHIAZIDE [Suspect]
     Active Substance: HYDROCHLOROTHIAZIDE\LOSARTAN POTASSIUM
     Indication: PRODUCT USED FOR UNKNOWN INDICATION
     Dosage: UNKNOWN

REACTIONS (5)
  - Blood pressure decreased [Unknown]
  - Hypertension [Unknown]
  - Abdominal distension [Unknown]
  - Fluid retention [Unknown]
  - Arthritis [Unknown]

NARRATIVE: CASE EVENT DATE: 201901
